FAERS Safety Report 4345133-3 (Version None)
Quarter: 2004Q2

REPORT INFORMATION
  Report Type: 
  Country: None (occurrence: None)
  Receive Date: 20040423
  Receipt Date: 20040218
  Transmission Date: 20050107
  Serious: Yes (Life-Threatening, Hospitalization)
  Sender: FDA-Public Use
  Company Number: JP-MERCK-0402USA01596

PATIENT
  Age: 82 Year
  Sex: Male

DRUGS (13)
  1. ALLOPURINOL [Concomitant]
     Indication: HYPERURICAEMIA
     Route: 048
     Dates: start: 20030922
  2. ASPENON [Suspect]
     Indication: ATRIAL FIBRILLATION
     Route: 048
     Dates: start: 20030922, end: 20031119
  3. BUFFERIN [Concomitant]
     Route: 065
  4. CLARITHROMYCIN [Concomitant]
     Indication: PNEUMONIA
     Route: 048
     Dates: start: 20031024, end: 20031119
  5. DIGOXIN [Concomitant]
     Indication: ATRIAL FIBRILLATION
     Route: 048
     Dates: start: 20030922
  6. HERBESSER [Concomitant]
     Indication: ANGINA UNSTABLE
     Route: 048
     Dates: start: 20030922
  7. PEPCID RPD [Suspect]
     Indication: GASTRITIS
     Route: 048
     Dates: start: 20030922, end: 20031119
  8. FRANDOL [Concomitant]
     Indication: ANGINA PECTORIS
     Route: 061
     Dates: start: 20030922
  9. MAGNESIUM OXIDE [Concomitant]
     Indication: CONSTIPATION
     Route: 048
     Dates: start: 20031125
  10. NICORANDIL [Concomitant]
     Indication: ANGINA UNSTABLE
     Route: 048
     Dates: start: 20030922
  11. LAXOBERON [Concomitant]
     Indication: CONSTIPATION
     Route: 048
     Dates: start: 20031125
  12. PREDONINE [Concomitant]
     Indication: PNEUMONIA
     Route: 048
     Dates: start: 20031020
  13. PREDONINE [Concomitant]
     Indication: ASTHMA
     Route: 048
     Dates: start: 20031020

REACTIONS (2)
  - HAEMOGLOBIN DECREASED [None]
  - LEUKOPENIA [None]
